FAERS Safety Report 9491903 (Version 1)
Quarter: 2013Q3

REPORT INFORMATION
  Report Type: Spontaneous
  Country: US (occurrence: US)
  Receive Date: 20130830
  Receipt Date: 20130830
  Transmission Date: 20140515
  Serious: Yes (Other)
  Sender: FDA-Public Use
  Company Number: US-BAYER-2013-105003

PATIENT
  Age: 28 Year
  Sex: Male
  Weight: 77 kg

DRUGS (2)
  1. ALEVE CAPLET [Suspect]
     Dosage: TAB
     Route: 048
  2. ALEVE CAPLET [Suspect]
     Dosage: 8 DF, ONCE
     Route: 048
     Dates: start: 20130827, end: 20130827

REACTIONS (2)
  - Self injurious behaviour [Recovering/Resolving]
  - Intentional overdose [None]
